FAERS Safety Report 20052151 (Version 2)
Quarter: 2021Q4

REPORT INFORMATION
  Report Type: Spontaneous
  Country: JP (occurrence: JP)
  Receive Date: 20211110
  Receipt Date: 20211126
  Transmission Date: 20220303
  Serious: Yes (Hospitalization)
  Sender: FDA-Public Use
  Company Number: JP-NOVARTISPH-NVSJ2021JP018345

PATIENT
  Age: 87 Year
  Sex: Female

DRUGS (2)
  1. EXELON PATCH [Suspect]
     Active Substance: RIVASTIGMINE
     Indication: Dementia Alzheimer^s type
     Dosage: USING EXP BY CUTTING 4.5 MG IN HALF
     Route: 062
  2. EXELON PATCH [Suspect]
     Active Substance: RIVASTIGMINE
     Dosage: PATCH2.5(CM2)
     Route: 062

REACTIONS (4)
  - Femoral neck fracture [Unknown]
  - Feeding disorder [Unknown]
  - Dehydration [Unknown]
  - Wrong technique in product usage process [Unknown]
